FAERS Safety Report 16000011 (Version 1)
Quarter: 2019Q1

REPORT INFORMATION
  Report Type: Report from Study
  Country: BR (occurrence: BR)
  Receive Date: 20190225
  Receipt Date: 20190225
  Transmission Date: 20190418
  Serious: Yes (Death, Hospitalization)
  Sender: FDA-Public Use
  Company Number: PHHY2015BR077115

PATIENT
  Sex: Female
  Weight: 42 kg

DRUGS (3)
  1. ACLASTA [Suspect]
     Active Substance: ZOLEDRONIC ACID
     Indication: OSTEOPOROSIS
     Dosage: 5 MG, UNK
     Route: 065
  2. OMEPRAZOLE. [Concomitant]
     Active Substance: OMEPRAZOLE
     Indication: GASTROINTESTINAL DISORDER
     Dosage: 1 TABLET IN THE MORNING AND 1 AT NIGHT
     Route: 065
  3. PREDNISONE. [Concomitant]
     Active Substance: PREDNISONE
     Indication: PRODUCT USED FOR UNKNOWN INDICATION
     Dosage: UNK
     Route: 065

REACTIONS (12)
  - Death [Fatal]
  - Osteoarthritis [Recovered/Resolved]
  - Weight decreased [Recovered/Resolved]
  - Pain [Recovered/Resolved]
  - Bacterial infection [Recovered/Resolved]
  - Malaise [Unknown]
  - Arthralgia [Recovered/Resolved]
  - Feeding disorder [Recovered/Resolved]
  - Blood glucose increased [Recovered/Resolved]
  - Gastrointestinal disorder [Recovered/Resolved]
  - Pain in extremity [Recovered/Resolved]
  - Arthritis [Recovered/Resolved]
